FAERS Safety Report 5950048-0 (Version None)
Quarter: 2008Q4

REPORT INFORMATION
  Report Type: 
  Country: None (occurrence: None)
  Receive Date: 20081112
  Receipt Date: 20081030
  Transmission Date: 20090506
  Serious: Yes (Death, Hospitalization)
  Sender: FDA-Public Use
  Company Number: SG-ELI_LILLY_AND_COMPANY-SG200811000047

PATIENT
  Age: 44 Year
  Sex: Female

DRUGS (3)
  1. GEMZAR [Suspect]
     Indication: BREAST CANCER METASTATIC
     Dosage: 1000 MG/M2, DAYS 1 AND 8 OF A 21-DAY CYCLE
     Route: 065
  2. DOXORUBICIN HCL [Concomitant]
     Indication: BREAST CANCER METASTATIC
     Dosage: 25 MG/M2, INFUSION OVER 1 H ON DAY 1 OF A 21 DAY CYCLE
     Route: 042
  3. DOXORUBICIN HCL [Concomitant]
     Dosage: 30 MG/M2, INFUSION OVER 1 H ON DAY 1 OF A 21 DAY CYCLE
     Route: 042

REACTIONS (2)
  - ACUTE CORONARY SYNDROME [None]
  - NEUTROPENIC SEPSIS [None]
